FAERS Safety Report 12987897 (Version 1)
Quarter: 2016Q4

REPORT INFORMATION
  Report Type: Not Available
  Country: IT (occurrence: IT)
  Receive Date: 20161130
  Receipt Date: 20161130
  Transmission Date: 20170207
  Serious: Yes (Other)
  Sender: FDA-Public Use
  Company Number: IT-MUNDIPHARMA DS AND PHARMACOVIGILANCE-GBR-2016-0041959

PATIENT
  Age: 68 Year
  Sex: Female

DRUGS (6)
  1. PEPTAZOL                           /01263204/ [Concomitant]
     Active Substance: PANTOPRAZOLE SODIUM
     Route: 048
  2. VEMURAFENIB [Concomitant]
     Active Substance: VEMURAFENIB
     Dosage: 4 POSOLOGIC UNITS [STRENGTH 240 MG]
     Route: 048
  3. FERROFOLIN [Concomitant]
     Dosage: 40 MG/15 ML + 0,185 MG/15 ML, 1 POSOLOGIC UNIT
     Route: 048
  4. ZELITREX [Concomitant]
     Active Substance: VALACYCLOVIR HYDROCHLORIDE
  5. TARGIN [Suspect]
     Active Substance: NALOXONE HYDROCHLORIDE\OXYCODONE HYDROCHLORIDE
     Indication: NECK PAIN
     Dosage: 2 POSOLOGIC UNITS/DAY [STRENGTH - 30MG/15MG ]
     Route: 048
     Dates: start: 20160927, end: 20160928
  6. RYTMONORM [Concomitant]
     Active Substance: PROPAFENONE
     Dosage: 2 POSOLOGIC UNITS [STRENGTH 325 MG]
     Route: 048

REACTIONS (3)
  - Overdose [Recovering/Resolving]
  - Hypokinesia [Recovering/Resolving]
  - Sopor [Recovering/Resolving]

NARRATIVE: CASE EVENT DATE: 20160928
